FAERS Safety Report 12779559 (Version 1)
Quarter: 2016Q3

REPORT INFORMATION
  Report Type: Spontaneous
  Country: FR (occurrence: FR)
  Receive Date: 20160926
  Receipt Date: 20160926
  Transmission Date: 20161109
  Serious: Yes (Hospitalization)
  Sender: FDA-Public Use
  Company Number: FR-ROCHE-1834459

PATIENT
  Age: 46 Year
  Sex: Female

DRUGS (11)
  1. COUMADINE [Concomitant]
     Active Substance: WARFARIN SODIUM
  2. DIFFU K [Concomitant]
     Active Substance: POTASSIUM CHLORIDE
  3. CERAZETTE (FRANCE) [Concomitant]
  4. TAMIFLU [Suspect]
     Active Substance: OSELTAMIVIR PHOSPHATE
     Indication: ANTIVIRAL PROPHYLAXIS
     Route: 048
     Dates: start: 20141115, end: 20141118
  5. OMEPRAZOLE. [Concomitant]
     Active Substance: OMEPRAZOLE
  6. AERIUS [Concomitant]
     Active Substance: DESLORATADINE
  7. BACTRIM [Suspect]
     Active Substance: SULFAMETHOXAZOLE\TRIMETHOPRIM
     Indication: LUNG DISORDER
     Route: 048
     Dates: start: 20141110, end: 20141118
  8. CORTANCYL [Concomitant]
     Active Substance: PREDNISONE
  9. RAMIPRIL. [Concomitant]
     Active Substance: RAMIPRIL
  10. PLAVIX [Concomitant]
     Active Substance: CLOPIDOGREL BISULFATE
  11. CITALOPRAM [Concomitant]
     Active Substance: CITALOPRAM HYDROBROMIDE

REACTIONS (3)
  - Rash [Recovered/Resolved]
  - Hepatocellular injury [Recovered/Resolved]
  - Acute kidney injury [Recovered/Resolved]

NARRATIVE: CASE EVENT DATE: 20141117
